FAERS Safety Report 8165293-6 (Version None)
Quarter: 2012Q1

REPORT INFORMATION
  Report Type: 
  Country: None (occurrence: None)
  Receive Date: 20120227
  Receipt Date: 20120215
  Transmission Date: 20120608
  Serious: No
  Sender: FDA-Public Use
  Company Number: CA-JNJFOC-20120209205

PATIENT
  Sex: Male

DRUGS (6)
  1. GABAPENTIN [Concomitant]
     Route: 065
  2. NUCYNTA [Concomitant]
     Indication: BREAKTHROUGH PAIN
     Route: 065
  3. QUININE SULFATE [Concomitant]
     Route: 065
  4. METHOTREXATE [Concomitant]
     Route: 065
  5. DURAGESIC-100 [Suspect]
     Indication: PROCEDURAL PAIN
     Route: 062
  6. SIMPONI [Concomitant]
     Route: 065

REACTIONS (2)
  - WRONG TECHNIQUE IN DRUG USAGE PROCESS [None]
  - PRODUCT QUALITY ISSUE [None]
